FAERS Safety Report 18905267 (Version 2)
Quarter: 2021Q2

REPORT INFORMATION
  Report Type: Spontaneous
  Country: JO (occurrence: JO)
  Receive Date: 20210217
  Receipt Date: 20210402
  Transmission Date: 20210717
  Serious: Yes (Hospitalization, Other)
  Sender: FDA-Public Use
  Company Number: JO-JNJFOC-20210130840

PATIENT
  Age: 7 Decade
  Sex: Female

DRUGS (5)
  1. MYCOPHENOLATE [Concomitant]
     Active Substance: MYCOPHENOLIC ACID
  2. BETA BLOCKING AGENTS [Concomitant]
     Active Substance: UNSPECIFIED INGREDIENT
  3. WARFARIN [Concomitant]
     Active Substance: WARFARIN
  4. STEROIDS [Concomitant]
     Active Substance: UNSPECIFIED INGREDIENT
  5. OPSUMIT [Suspect]
     Active Substance: MACITENTAN
     Indication: PULMONARY HYPERTENSION
     Route: 048
     Dates: start: 202012

REACTIONS (4)
  - Haematoma muscle [Recovered/Resolved]
  - Haematuria [Unknown]
  - COVID-19 [Recovering/Resolving]
  - Pericardial effusion [Recovering/Resolving]

NARRATIVE: CASE EVENT DATE: 20210309
